FAERS Safety Report 6039508-4 (Version None)
Quarter: 2009Q1

REPORT INFORMATION
  Report Type: 
  Country: None (occurrence: None)
  Receive Date: 20090114
  Receipt Date: 20081230
  Transmission Date: 20090719
  Serious: Yes (Hospitalization)
  Sender: FDA-Public Use
  Company Number: KV200801492

PATIENT
  Age: 93 Year
  Sex: Male
  Weight: 72.6 kg

DRUGS (7)
  1. PROPAFENONE HCL [Suspect]
     Indication: HEART RATE IRREGULAR
     Dosage: 150 MG, BID ORAL
     Route: 048
     Dates: start: 20020101
  2. KEPPRA [Concomitant]
  3. PARCOPA [Concomitant]
  4. EXELON	/01383201/ (RIVASTIGMINE) [Concomitant]
  5. NAMENDA [Concomitant]
  6. PROSCAR [Concomitant]
  7. MULTI-VITAMINS [Concomitant]

REACTIONS (5)
  - BLOOD PRESSURE DECREASED [None]
  - DYSSTASIA [None]
  - FALL [None]
  - LISTLESS [None]
  - PRODUCT QUALITY ISSUE [None]
